FAERS Safety Report 8576771-X (Version None)
Quarter: 2012Q3

REPORT INFORMATION
  Report Type: 
  Country: None (occurrence: None)
  Receive Date: 20120807
  Receipt Date: 20120723
  Transmission Date: 20120928
  Serious: Yes (Other)
  Sender: FDA-Public Use
  Company Number: PL-WATSON-2012-13374

PATIENT
  Age: 24 Year
  Sex: Male

DRUGS (4)
  1. METOCLOPRAMIDE INJECTION [Suspect]
     Indication: AORTIC DISSECTION
     Dosage: 10 MG, SINGLE
     Route: 065
  2. METOCLOPRAMIDE INJECTION [Suspect]
     Dosage: 10 MG, BID
     Route: 042
  3. METOCLOPRAMIDE INJECTION [Suspect]
     Dosage: 40 MG, BID
     Route: 042
  4. METOCLOPRAMIDE INJECTION [Suspect]
     Dosage: 20 MG, DAILY
     Route: 042

REACTIONS (6)
  - AUTONOMIC NERVOUS SYSTEM IMBALANCE [None]
  - DYSTONIA [None]
  - TREMOR [None]
  - EXTRAPYRAMIDAL DISORDER [None]
  - TEMPOROMANDIBULAR JOINT SYNDROME [None]
  - ANXIETY [None]
